FAERS Safety Report 6527597-X (Version None)
Quarter: 2010Q1

REPORT INFORMATION
  Report Type: 
  Country: None (occurrence: None)
  Receive Date: 20100105
  Receipt Date: 20100104
  Transmission Date: 20100710
  Serious: Yes (Other)
  Sender: FDA-Public Use
  Company Number: CA-WYE-G04795609

PATIENT
  Age: 58 Year
  Sex: Male
  Weight: 82 kg

DRUGS (2)
  1. TEMSIROLIMUS [Suspect]
     Indication: METASTATIC RENAL CELL CARCINOMA
     Route: 042
     Dates: start: 20091020, end: 20091208
  2. TEMSIROLIMUS [Suspect]
     Route: 042
     Dates: start: 20091201

REACTIONS (1)
  - PERIORBITAL OEDEMA [None]
